FAERS Safety Report 7626924-X (Version None)
Quarter: 2011Q3

REPORT INFORMATION
  Report Type: 
  Country: None (occurrence: None)
  Receive Date: 20110721
  Receipt Date: 20110712
  Transmission Date: 20111222
  Serious: Yes (Other)
  Sender: FDA-Public Use
  Company Number: US-ASTRAZENECA-2011SE35718

PATIENT
  Age: 80 Year
  Sex: Female

DRUGS (4)
  1. LIPITOR [Concomitant]
  2. NEXIUM [Suspect]
     Route: 048
  3. PLAVIX [Concomitant]
  4. ASPIRIN [Concomitant]

REACTIONS (2)
  - MYOCARDIAL INFARCTION [None]
  - MALAISE [None]
